FAERS Safety Report 9430368 (Version 1)
Quarter: 2013Q3

REPORT INFORMATION
  Report Type: Spontaneous
  Country: US (occurrence: US)
  Receive Date: 20130730
  Receipt Date: 20130730
  Transmission Date: 20140515
  Serious: Yes (Other)
  Sender: FDA-Public Use
  Company Number: US-JNJFOC-20130609552

PATIENT
  Age: 27 Year
  Sex: Male
  Weight: 89.36 kg

DRUGS (8)
  1. REMICADE [Suspect]
     Indication: CROHN^S DISEASE
     Dosage: ON TREATMENT FOR 2 YEARS
     Route: 042
     Dates: start: 20111212
  2. REMICADE [Suspect]
     Indication: CROHN^S DISEASE
     Route: 042
     Dates: start: 2013
  3. CYCLOBENZAPRINE HYDROCHLORIDE [Concomitant]
     Route: 048
     Dates: start: 20111212
  4. HYDROCODONE W/PARACETAMOL [Concomitant]
     Indication: NECK PAIN
     Dosage: 5/500MG, 1-2 TABLETS AT BED TIME
     Route: 048
     Dates: start: 20111212
  5. IRON [Concomitant]
     Dosage: 5/500MG, 1-2 TABLETS AT BED TIME
     Route: 048
     Dates: start: 20110506
  6. PREDNISONE [Concomitant]
     Dosage: 5/500MG, 1-2 TABLETS AT BED TIME
     Route: 048
  7. PREDNISONE [Concomitant]
     Dosage: 5/500MG, 1-2 TABLETS AT BED TIME
     Route: 048
     Dates: start: 20111212
  8. PREDNISONE [Concomitant]
     Dosage: 5/500MG, 1-2 TABLETS AT BED TIME
     Route: 048

REACTIONS (4)
  - Local swelling [Recovered/Resolved]
  - Localised oedema [Unknown]
  - Local swelling [Unknown]
  - Pruritus [Recovered/Resolved]
